FAERS Safety Report 17880637 (Version 1)
Quarter: 2020Q2

REPORT INFORMATION
  Report Type: Spontaneous
  Country: US (occurrence: US)
  Receive Date: 20200610
  Receipt Date: 20200610
  Transmission Date: 20200714
  Serious: Yes (Other)
  Sender: FDA-Public Use
  Company Number: None

PATIENT
  Age: 50 Year
  Sex: Male
  Weight: 99.79 kg

DRUGS (8)
  1. PREDISOLONE ACETATE [Concomitant]
  2. ACYCOLOVIR [Concomitant]
  3. FINASTERIDE. [Concomitant]
     Active Substance: FINASTERIDE
  4. CLINDAMYCIN PHOSPHATE. [Concomitant]
     Active Substance: CLINDAMYCIN PHOSPHATE
  5. XHANCE [Suspect]
     Active Substance: FLUTICASONE PROPIONATE
     Indication: NASAL POLYPS
     Dosage: ?          OTHER ROUTE:SPAY INHALER?
     Route: 045
     Dates: start: 20200509, end: 20200529
  6. CPAP MACHINE [Concomitant]
  7. LEVOBUNOLO HCL [Concomitant]
  8. MEMANTINE HCL [Concomitant]
     Active Substance: MEMANTINE

REACTIONS (5)
  - Device malfunction [None]
  - Limb injury [None]
  - Skin laceration [None]
  - Device breakage [None]
  - Scar [None]

NARRATIVE: CASE EVENT DATE: 20200529
